FAERS Safety Report 23663251 (Version 1)
Quarter: 2024Q1

REPORT INFORMATION
  Report Type: Spontaneous
  Country: PT (occurrence: PT)
  Receive Date: 20240322
  Receipt Date: 20240322
  Transmission Date: 20240409
  Serious: Yes (Life-Threatening)
  Sender: FDA-Public Use
  Company Number: None

PATIENT
  Age: 17 Year
  Sex: Male

DRUGS (6)
  1. ROPIVACAINE [Suspect]
     Active Substance: ROPIVACAINE
     Indication: Nerve block
     Dosage: 0.2 PERCENT 10ML + 20ML?FORM OF ADMIN: SOLUTION FOR INJECTION
     Dates: start: 20231123, end: 20231123
  2. FENTANYL [Suspect]
     Active Substance: FENTANYL\FENTANYL CITRATE
     Indication: Anaesthesia
     Dosage: 50MCG?FORM OF ADMIN: SOLUTION FOR INJECTION?ROUTE OF ADMIN: INTRAVENOUS
     Dates: start: 20231123, end: 20231123
  3. KETOROLAC [Suspect]
     Active Substance: KETOROLAC TROMETHAMINE
     Indication: Anaesthesia
     Dosage: 30MG,SINGLE DOSE?ROUTE OF ADMIN: INTRAVENOUS?FORM OF ADMIN: SOLUTION FOR INJECTION
     Dates: start: 20231123, end: 20231123
  4. MIDAZOLAM [Suspect]
     Active Substance: MIDAZOLAM
     Indication: Anaesthesia
     Dosage: 2 MG,SINGLE DOSE?FORM OF ADMIN: SOLUTION FOR INJECTION?ROUTE OF ADMIN: INTRAVENOUS
     Dates: start: 20231123
  5. DEXAMETHASONE [Suspect]
     Active Substance: DEXAMETHASONE
     Indication: Anaesthesia
     Dosage: 8MG, SINGLE DOSE?FORM OF ADMIN: SOLUTION FOR INJECTION?ROUTE OF ADMIN: INTRAVENOUS
     Dates: start: 20231123, end: 20231123
  6. CEFAZOLIN [Suspect]
     Active Substance: CEFAZOLIN
     Indication: Antibiotic prophylaxis
     Dosage: 2G, SINGLE DOSE?ROUTE OF ADMIN: INTRAVENOUS?FORM OF ADMIN: SOLUTION FOR INJECTION
     Dates: start: 20231123, end: 20231123

REACTIONS (1)
  - Anaphylactic reaction [Recovered/Resolved]

NARRATIVE: CASE EVENT DATE: 20231123
